FAERS Safety Report 24120506 (Version 1)
Quarter: 2024Q3

REPORT INFORMATION
  Report Type: Spontaneous
  Country: GB (occurrence: GB)
  Receive Date: 20240722
  Receipt Date: 20240722
  Transmission Date: 20241017
  Serious: Yes (Hospitalization, Other)
  Sender: DAIICHI
  Company Number: None

PATIENT
  Age: 47 Year
  Sex: Male
  Weight: 91 kg

DRUGS (5)
  1. EDOXABAN [Suspect]
     Active Substance: EDOXABAN
     Indication: Ill-defined disorder
     Dosage: 60 MG, QD
     Route: 048
     Dates: start: 20240709, end: 20240711
  2. TOLVAPTAN [Concomitant]
     Active Substance: TOLVAPTAN
     Indication: Ill-defined disorder
     Dosage: UNK (NOT TO BE ISSUED AT CMP. SUPPLIED BY RENAL TEAM)
     Route: 065
     Dates: start: 20221111
  3. LOSARTAN [Concomitant]
     Active Substance: LOSARTAN
     Indication: Ill-defined disorder
     Dosage: 1 DF, QD (TAKE ONE TABLET ONCE A DAY)
     Route: 065
     Dates: start: 20230425
  4. ATORVASTATIN [Concomitant]
     Active Substance: ATORVASTATIN
     Indication: Blood cholesterol
     Dosage: 1 DF, QD (TAKE ONE TABLET ONCE A DAY FOR CHOLESTEROL)
     Route: 065
     Dates: start: 20230523
  5. BISOPROLOL [Concomitant]
     Active Substance: BISOPROLOL\BISOPROLOL FUMARATE
     Indication: Ill-defined disorder
     Dosage: 1 DF, QD (TAKE ONE TABLET ONCE A DAY)
     Route: 065
     Dates: start: 20230523

REACTIONS (2)
  - Renal cyst ruptured [Unknown]
  - Renal cyst haemorrhage [Recovered/Resolved]

NARRATIVE: CASE EVENT DATE: 20240709
